FAERS Safety Report 22109535 (Version 2)
Quarter: 2023Q2

REPORT INFORMATION
  Report Type: Spontaneous
  Country: US (occurrence: US)
  Receive Date: 20230317
  Receipt Date: 20230511
  Transmission Date: 20230722
  Serious: No
  Sender: FDA-Public Use
  Company Number: US-BIOGEN-2023BI01193756

PATIENT
  Sex: Female

DRUGS (16)
  1. VUMERITY [Suspect]
     Active Substance: DIROXIMEL FUMARATE
     Indication: Multiple sclerosis
     Route: 050
  2. AMBIEN [Concomitant]
     Active Substance: ZOLPIDEM TARTRATE
     Route: 050
  3. XANAX [Concomitant]
     Active Substance: ALPRAZOLAM
     Route: 050
  4. AMITRIPTYLINE HYDROCHLORIDE [Concomitant]
     Active Substance: AMITRIPTYLINE HYDROCHLORIDE
     Route: 050
  5. AMLODIPINE BESYLATE [Concomitant]
     Active Substance: AMLODIPINE BESYLATE
     Route: 050
  6. CLONIDINE HYDROCHLORIDE [Concomitant]
     Active Substance: CLONIDINE HYDROCHLORIDE
     Route: 050
  7. LASIX [Concomitant]
     Active Substance: FUROSEMIDE
     Route: 050
  8. GABAPENTIN [Concomitant]
     Active Substance: GABAPENTIN
     Route: 050
  9. EMGALITY [Concomitant]
     Active Substance: GALCANEZUMAB-GNLM
     Route: 050
  10. ZOFRAN [Concomitant]
     Active Substance: ONDANSETRON HYDROCHLORIDE
     Route: 050
  11. NURTEC ODT [Concomitant]
     Active Substance: RIMEGEPANT SULFATE
     Route: 050
  12. TOPAMAX [Concomitant]
     Active Substance: TOPIRAMATE
     Route: 050
  13. PROTONIX [Concomitant]
     Active Substance: PANTOPRAZOLE SODIUM
     Route: 050
  14. EMGALITY [Concomitant]
     Active Substance: GALCANEZUMAB-GNLM
     Route: 050
  15. IBANDRONATE SODIUM [Concomitant]
     Active Substance: IBANDRONATE SODIUM
     Route: 050
  16. HYDROCHLOROTHIAZIDE [Concomitant]
     Active Substance: HYDROCHLOROTHIAZIDE
     Route: 050

REACTIONS (1)
  - Multiple sclerosis [Unknown]
